FAERS Safety Report 10967484 (Version 15)
Quarter: 2017Q4

REPORT INFORMATION
  Report Type: Spontaneous
  Country: US (occurrence: US)
  Receive Date: 20150330
  Receipt Date: 20171017
  Transmission Date: 20180320
  Serious: Yes (Hospitalization, Other)
  Sender: FDA-Public Use
  Company Number: US-PFIZER INC-2015106534

PATIENT
  Age: 71 Year
  Sex: Male
  Weight: 93 kg

DRUGS (45)
  1. PANTOPRAZOLE [Concomitant]
     Active Substance: PANTOPRAZOLE
     Indication: GASTROOESOPHAGEAL REFLUX DISEASE
     Dosage: 40 MG, UNK
     Route: 048
  2. PAROXETINE. [Concomitant]
     Active Substance: PAROXETINE
     Dosage: 20 MG, UNK
  3. CRESTOR [Concomitant]
     Active Substance: ROSUVASTATIN CALCIUM
     Dosage: 20 MG, 1X/DAY
     Route: 048
  4. TRIAMCINOLON [Concomitant]
     Dosage: UNK
  5. CRESTOR [Concomitant]
     Active Substance: ROSUVASTATIN CALCIUM
     Indication: BLOOD CHOLESTEROL ABNORMAL
     Dosage: 40 MG, UNK
     Route: 048
  6. ZOFRAN [Concomitant]
     Active Substance: ONDANSETRON HYDROCHLORIDE
     Dosage: UNK
  7. HYDROCHLOROTHIAZIDE. [Concomitant]
     Active Substance: HYDROCHLOROTHIAZIDE
     Dosage: 12.5 MG, UNK
     Route: 048
  8. FLUTICASONE. [Concomitant]
     Active Substance: FLUTICASONE
     Dosage: 0.05 %, UNK
  9. LOMOTIL [Concomitant]
     Active Substance: ATROPINE SULFATE\DIPHENOXYLATE HYDROCHLORIDE
     Dosage: 2.5 MG, UNK
  10. ONDASETRON [Concomitant]
     Active Substance: ONDANSETRON
     Dosage: 8 MG, UNK
  11. DIPHENOXYLATE/ATROPINE [Concomitant]
     Active Substance: ATROPINE\DIPHENOXYLATE
     Dosage: 2.5 MG, UNK
  12. SUTENT [Suspect]
     Active Substance: SUNITINIB MALATE
     Dosage: 50 MG, CYCLIC (FOR 5 DAYS ON AND 2 DAYS OFF, FOR TOTAL OF 28 DAYS ON AND THEN 14 DAYS OFF)
  13. SUTENT [Suspect]
     Active Substance: SUNITINIB MALATE
     Dosage: 50 MG, CYCLIC (TAKE 1 CAPSULE BY MOUTH DAILY MONDAY-FRIDAY FOR 4 WEEKS, THEN 2 WEEKS OFF)
     Route: 048
     Dates: start: 20160628
  14. ROPINIROLE. [Concomitant]
     Active Substance: ROPINIROLE
     Dosage: 2 MG, UNK
  15. INDAPAMIDE. [Concomitant]
     Active Substance: INDAPAMIDE
     Dosage: 2.5 MG, UNK
  16. AMLODIPINE [Concomitant]
     Active Substance: AMLODIPINE BESYLATE
     Indication: BLOOD PRESSURE ABNORMAL
     Dosage: 5 MG, 1X/DAY
     Route: 048
  17. TYLENOL [Concomitant]
     Active Substance: ACETAMINOPHEN
     Dosage: 500 MG, UNK
     Route: 048
  18. WARFARIN [Concomitant]
     Active Substance: WARFARIN
     Dosage: 5 MG, UNK
  19. SUTENT [Suspect]
     Active Substance: SUNITINIB MALATE
     Indication: METASTATIC RENAL CELL CARCINOMA
     Dosage: 50 MG, CYCLIC (DAILY FOR 28 DAYS ON /14 DAYS OFF)
     Route: 048
     Dates: start: 20150226
  20. SUTENT [Suspect]
     Active Substance: SUNITINIB MALATE
     Dosage: 50 MG, CYCLIC (FOR 2 DAYS ON / 1 DAY OFF, FOR TOTAL OF 28 DAYS ON AND THEN 14 DAYS OFF)
     Dates: start: 201504
  21. AVAPRO [Concomitant]
     Active Substance: IRBESARTAN
     Dosage: 300 MG, 1X/DAY
     Route: 048
  22. GABAPENTIN. [Concomitant]
     Active Substance: GABAPENTIN
     Dosage: 300 MG, UNK
     Route: 048
  23. LOVENOX [Concomitant]
     Active Substance: ENOXAPARIN SODIUM
     Dosage: UNK, DAILY
     Dates: end: 20150630
  24. LYRICA [Concomitant]
     Active Substance: PREGABALIN
  25. GABAPENTIN. [Concomitant]
     Active Substance: GABAPENTIN
     Dosage: 400 MG, UNK
  26. CLOBETASOL PROPIONATE. [Concomitant]
     Active Substance: CLOBETASOL PROPIONATE
     Dosage: UNK
  27. SUTENT [Suspect]
     Active Substance: SUNITINIB MALATE
     Indication: MALIGNANT URINARY TRACT NEOPLASM
     Dosage: 50 MG, UNK (28 DAYS STRAIGHT, 50MG CAPSULES, ONE A DAY BY MOUTH, AT 4 O^CLOCK EVERYDAY)
     Dates: start: 20150302
  28. MELOXICAM. [Concomitant]
     Active Substance: MELOXICAM
     Dosage: UNK
  29. OMEGA-3 ACIDS [Concomitant]
     Active Substance: OMEGA-3 FATTY ACIDS
     Dosage: UNK
  30. FISH OIL [Concomitant]
     Active Substance: FISH OIL
     Dosage: UNK
  31. ASPIRIN. [Concomitant]
     Active Substance: ASPIRIN
     Dosage: 80 MG, 1X/DAY
     Route: 048
  32. WARFARIN [Concomitant]
     Active Substance: WARFARIN
     Dosage: 7.5 MG, UNK
  33. IRBESARTAN. [Concomitant]
     Active Substance: IRBESARTAN
     Indication: HYPERTENSION
     Dosage: 300 MG, UNK
     Route: 048
  34. PERCOCET [Concomitant]
     Active Substance: ACETAMINOPHEN\OXYCODONE HYDROCHLORIDE
     Dosage: UNK (OXYCODONE 10MG, PARACETAMOL 325 MG)
  35. CALCIUM + MAGNESIUM [Concomitant]
     Dosage: UNK
  36. SUTENT [Suspect]
     Active Substance: SUNITINIB MALATE
     Dosage: 50 MG, CYCLIC (TAKE 1 CAPSULE BY MOUTH DAILY MONDAY-FRIDAY FOR 4 WEEKS, THEN 2 WEEKS OFF)
     Route: 048
     Dates: start: 20160627
  37. VITAMIN B COMPLEX [Concomitant]
     Active Substance: CYANOCOBALAMIN\DEXPANTHENOL\NIACINAMIDE\PYRIDOXINE HYDROCHLORIDE\RIBOFLAVIN 5^-PHOSPHATE SODIUM\THIAMINE HYDROCHLORIDE\VITAMIN B COMPLEX
     Dosage: UNK
  38. INDAPAMIDE. [Concomitant]
     Active Substance: INDAPAMIDE
     Indication: HYPERTENSION
     Dosage: 1.25 MG, 1X/DAY
  39. MELATONIN [Concomitant]
     Active Substance: MELATONIN
     Dosage: UNK
  40. CEFDINIR. [Concomitant]
     Active Substance: CEFDINIR
     Dosage: UNK
  41. SUTENT [Suspect]
     Active Substance: SUNITINIB MALATE
     Dosage: 50 MG CYCLIC, (TAKE 1 CAPSULE BY MOUTH DAILY MONDAY-FRIDAY FOR 4 WEEKS, THEN 2 WEEKS REST)
     Route: 048
     Dates: start: 2015
  42. MAGNESIUM OXIDE. [Concomitant]
     Active Substance: MAGNESIUM OXIDE
     Dosage: UNK
  43. ASPIRIN. [Concomitant]
     Active Substance: ASPIRIN
     Dosage: 81 MG, UNK
     Route: 048
  44. CEPHALEXIN. [Concomitant]
     Active Substance: CEPHALEXIN
     Dosage: 500 MG, UNK
  45. LOSARTAN POTASSIUM. [Concomitant]
     Active Substance: LOSARTAN POTASSIUM
     Dosage: 100 MG, UNK

REACTIONS (37)
  - Sensory loss [Unknown]
  - Hypotension [Unknown]
  - Neck pain [Recovering/Resolving]
  - Gastric disorder [Unknown]
  - Anxiety [Unknown]
  - Diarrhoea [Not Recovered/Not Resolved]
  - Stomatitis [Recovered/Resolved]
  - Skin fissures [Unknown]
  - Hyperkeratosis [Not Recovered/Not Resolved]
  - Dry mouth [Unknown]
  - Haemorrhoidal haemorrhage [Recovering/Resolving]
  - Pyrexia [Recovered/Resolved]
  - Skin induration [Recovering/Resolving]
  - Arthralgia [Unknown]
  - Erythema [Unknown]
  - Deep vein thrombosis [Unknown]
  - Pain in extremity [Not Recovered/Not Resolved]
  - Muscle spasms [Unknown]
  - Vomiting [Unknown]
  - Bone pain [Recovered/Resolved]
  - Insomnia [Unknown]
  - Nausea [Recovering/Resolving]
  - Scleral discolouration [Unknown]
  - Gait inability [Recovering/Resolving]
  - Metastatic renal cell carcinoma [Unknown]
  - Muscular weakness [Not Recovered/Not Resolved]
  - Myalgia [Unknown]
  - Tremor [Unknown]
  - Limb injury [Not Recovered/Not Resolved]
  - Clostridium difficile colitis [Recovered/Resolved]
  - Pulmonary embolism [Recovered/Resolved]
  - Thrombosis [Unknown]
  - Fall [Unknown]
  - Blister [Recovered/Resolved]
  - Fatigue [Unknown]
  - Disease progression [Unknown]
  - Pelvic pain [Unknown]

NARRATIVE: CASE EVENT DATE: 2015
